FAERS Safety Report 9198019 (Version 1)
Quarter: 2013Q1

REPORT INFORMATION
  Report Type: Spontaneous
  Country: US (occurrence: US)
  Receive Date: 20130328
  Receipt Date: 20130328
  Transmission Date: 20140127
  Serious: Yes (Hospitalization, Other)
  Sender: FDA-Public Use
  Company Number: US-TEVA-394337USA

PATIENT
  Sex: Female

DRUGS (1)
  1. SEASONALE [Suspect]
     Indication: MENSTRUATION IRREGULAR
     Dates: start: 201206, end: 201210

REACTIONS (8)
  - Benign intracranial hypertension [Not Recovered/Not Resolved]
  - Headache [Not Recovered/Not Resolved]
  - Feeling abnormal [Unknown]
  - Feeling abnormal [Unknown]
  - Vomiting [Unknown]
  - Nausea [Unknown]
  - Visual impairment [Unknown]
  - Off label use [Unknown]
